FAERS Safety Report 21880448 (Version 2)
Quarter: 2023Q2

REPORT INFORMATION
  Report Type: Spontaneous
  Country: US (occurrence: US)
  Receive Date: 20230118
  Receipt Date: 20230601
  Transmission Date: 20230722
  Serious: Yes (Death, Hospitalization, Other)
  Sender: FDA-Public Use
  Company Number: US-TEVA-2023-US-2847590

PATIENT
  Age: 73 Year
  Sex: Male
  Weight: 99.34 kg

DRUGS (11)
  1. HYDROCHLOROTHIAZIDE\VALSARTAN [Suspect]
     Active Substance: HYDROCHLOROTHIAZIDE\VALSARTAN
     Indication: Product used for unknown indication
     Dosage: 320MG/12.5MG
     Route: 065
     Dates: start: 20141226, end: 20180729
  2. HYDROCHLOROTHIAZIDE\VALSARTAN [Suspect]
     Active Substance: HYDROCHLOROTHIAZIDE\VALSARTAN
     Indication: Product used for unknown indication
     Dosage: 320MG/12.5MG
     Route: 065
     Dates: start: 20140706, end: 20150124
  3. HYDROCHLOROTHIAZIDE\VALSARTAN [Suspect]
     Active Substance: HYDROCHLOROTHIAZIDE\VALSARTAN
     Indication: Product used for unknown indication
     Dosage: 320MG/12.5MG
     Route: 065
     Dates: start: 20160510, end: 20160808
  4. TYLENOL [Concomitant]
     Active Substance: ACETAMINOPHEN
     Indication: Pain
     Dosage: 400MG AS NEEDED
     Dates: start: 2015, end: 2023
  5. ASPIRIN [Concomitant]
     Active Substance: ASPIRIN
     Indication: Cardiovascular event prophylaxis
     Dosage: 81 MILLIGRAM DAILY; 81 MG, DAILY
     Route: 048
     Dates: start: 2015, end: 2023
  6. SPIRONOLACTONE [Concomitant]
     Active Substance: SPIRONOLACTONE
     Indication: Hypertension
     Dosage: 25 MILLIGRAM DAILY; DAILY
     Dates: start: 2018, end: 2022
  7. ATORVASTATIN [Concomitant]
     Active Substance: ATORVASTATIN
     Indication: Blood cholesterol increased
     Dosage: 40 MILLIGRAM DAILY; DAILY
     Dates: start: 2016, end: 2017
  8. AMLODIPINE BESYLATE [Concomitant]
     Active Substance: AMLODIPINE BESYLATE
     Indication: Hypertension
     Dosage: 10 MILLIGRAM DAILY; DAILY
     Dates: start: 2016, end: 2018
  9. CARVEDILOL [Concomitant]
     Active Substance: CARVEDILOL
     Indication: Hypertension
     Dosage: 3.125 MILLIGRAM DAILY; DAILY
     Route: 048
     Dates: start: 2015, end: 2022
  10. METOPROLOL TARTRATE [Concomitant]
     Active Substance: METOPROLOL TARTRATE
     Indication: Hypertension
     Dosage: 25 MILLIGRAM DAILY; DAILY
     Dates: start: 2014, end: 2016
  11. ROSUVASTATIN CALCIUM [Concomitant]
     Active Substance: ROSUVASTATIN CALCIUM
     Indication: Blood cholesterol increased
     Dosage: 20 MILLIGRAM DAILY; DAILY
     Route: 048
     Dates: start: 2017, end: 2018

REACTIONS (5)
  - Pancreatic carcinoma metastatic [Fatal]
  - Hepatic cancer metastatic [Fatal]
  - Jaundice [Unknown]
  - Metastases to lymph nodes [Unknown]
  - Cancer pain [Unknown]
